FAERS Safety Report 9529236 (Version 1)
Quarter: 2013Q2

REPORT INFORMATION
  Report Type: Spontaneous
  Country: US (occurrence: None)
  Receive Date: 20130401
  Receipt Date: 20130401
  Transmission Date: 20140414
  Serious: No
  Sender: FDA-Public Use
  Company Number: PHEH2012US011047

PATIENT
  Age: 86 Year
  Sex: Female

DRUGS (10)
  1. EXELON PATCH [Suspect]
     Indication: AMNESIA
     Dosage: 9.5MG/24  HOURS.  TRANSDERMAL
     Route: 062
  2. ASPIRIN (ACETYLSALICYLIC ACID) [Concomitant]
  3. VITAMIN B 12 (CYANOCOBALAMIN) [Concomitant]
  4. VITAMIN D (ERGOCALCIFEROL) [Concomitant]
  5. SYNTHROID (LEVOTHYROXINE SODIUM) [Concomitant]
  6. POTASSIUM CHLORIDE (POTASSIUM CHLORIDE) [Concomitant]
  7. SERTRALINE HYDROCHLORIDE (SERTRALINE HYDROCHLORIDE) [Concomitant]
  8. ALENDRONATE SODIUM (ALENDRONATE SODIUM) [Concomitant]
  9. VIACTIV (CALCIUM, COLECALCIFEROL) [Concomitant]
  10. NAMENDA (MEMANTINE HYDROCHLORIDE) [Concomitant]

REACTIONS (6)
  - Overdose [None]
  - Heart rate decreased [None]
  - Malaise [None]
  - Vomiting [None]
  - Urinary tract infection [None]
  - Incorrect dose administered [None]
